APPROVED DRUG PRODUCT: MECLOFENAMATE SODIUM
Active Ingredient: MECLOFENAMATE SODIUM
Strength: EQ 50MG BASE
Dosage Form/Route: CAPSULE;ORAL
Application: A071081 | Product #002
Applicant: MYLAN PHARMACEUTICALS INC
Approved: Sep 3, 1986 | RLD: No | RS: No | Type: RX